FAERS Safety Report 8077039-0 (Version None)
Quarter: 2012Q1

REPORT INFORMATION
  Report Type: 
  Country: None (occurrence: None)
  Receive Date: 20120127
  Receipt Date: 20120118
  Transmission Date: 20120608
  Serious: Yes (Other)
  Sender: FDA-Public Use
  Company Number: PHHY2012BR004266

PATIENT
  Sex: Female

DRUGS (1)
  1. EXELON [Suspect]
     Indication: MEMORY IMPAIRMENT
     Dosage: 9.5 MG\24H (18 MG/10CM2)
     Route: 062

REACTIONS (4)
  - OSTEONECROSIS [None]
  - FALL [None]
  - FEMUR FRACTURE [None]
  - OSTEOPOROSIS [None]
